FAERS Safety Report 10178321 (Version 1)
Quarter: 2014Q2

REPORT INFORMATION
  Report Type: Spontaneous
  Country: US (occurrence: US)
  Receive Date: 20140519
  Receipt Date: 20140519
  Transmission Date: 20141212
  Serious: Yes (Other)
  Sender: FDA-Public Use
  Company Number: US-DRREDDYS-USA/USA/14/0039325

PATIENT
  Age: 73 Year
  Sex: Female

DRUGS (2)
  1. GEMCITABINE [Suspect]
     Indication: CHOLANGIOCARCINOMA
     Route: 065
  2. CAPECITABINE [Suspect]
     Indication: CHOLANGIOCARCINOMA
     Route: 065

REACTIONS (1)
  - Haemolytic uraemic syndrome [Recovering/Resolving]
